FAERS Safety Report 14567852 (Version 2)
Quarter: 2018Q2

REPORT INFORMATION
  Report Type: Spontaneous
  Country: US (occurrence: US)
  Receive Date: 20180223
  Receipt Date: 20180413
  Transmission Date: 20180711
  Serious: No
  Sender: FDA-Public Use
  Company Number: US-GLAXOSMITHKLINE-US2018030287

PATIENT
  Age: 72 Year
  Sex: Female
  Weight: 71.66 kg

DRUGS (11)
  1. VENTOLIN HFA [Suspect]
     Active Substance: ALBUTEROL SULFATE
     Indication: COUGH
  2. VENTOLIN HFA [Suspect]
     Active Substance: ALBUTEROL SULFATE
     Indication: WHEEZING
  3. CARVEDILOL. [Concomitant]
     Active Substance: CARVEDILOL
  4. OSCAL [Concomitant]
     Active Substance: CALCIUM CARBONATE
  5. ISOSORBIDE. [Concomitant]
     Active Substance: ISOSORBIDE
  6. VENTOLIN HFA [Suspect]
     Active Substance: ALBUTEROL SULFATE
     Indication: CHEST DISCOMFORT
     Dosage: 1 PUFF(S), 6D
     Route: 055
     Dates: start: 20180220
  7. ETODOLAC. [Concomitant]
     Active Substance: ETODOLAC
  8. INDAPAMIDE. [Concomitant]
     Active Substance: INDAPAMIDE
  9. TAMOXIFEN [Concomitant]
     Active Substance: TAMOXIFEN
  10. ROBITUSSIN DM [Concomitant]
     Active Substance: DEXTROMETHORPHAN HYDROBROMIDE\GUAIFENESIN
  11. ROSUVASTATIN. [Concomitant]
     Active Substance: ROSUVASTATIN

REACTIONS (3)
  - Wrong technique in device usage process [Not Recovered/Not Resolved]
  - Drug ineffective [Unknown]
  - Cough [Unknown]

NARRATIVE: CASE EVENT DATE: 20180221
